FAERS Safety Report 22190721 (Version 7)
Quarter: 2024Q2

REPORT INFORMATION
  Report Type: Report from Study
  Country: CN (occurrence: CN)
  Receive Date: 20230410
  Receipt Date: 20240513
  Transmission Date: 20240716
  Serious: Yes (Hospitalization)
  Sender: FDA-Public Use
  Company Number: CN-ABBVIE-4720592

PATIENT
  Age: 19 Year
  Sex: Male
  Weight: 50 kg

DRUGS (7)
  1. HUMIRA [Suspect]
     Active Substance: ADALIMUMAB
     Indication: Crohn^s disease
     Dosage: 160 MILLIGRAM? FREQUENCY TEXT: ONCE?FORM STRENGTH: 40 MILLIGRAM
     Route: 058
     Dates: start: 20230418, end: 20230822
  2. HUMIRA [Suspect]
     Active Substance: ADALIMUMAB
     Dosage: 80 MILLIGRAM?FREQUENCY TEXT: ONCE?FORM STRENGTH: 40 MILLIGRAM
     Route: 058
     Dates: start: 20230321, end: 20230321
  3. HUMIRA [Suspect]
     Active Substance: ADALIMUMAB
     Dosage: FORM STRENGTH: 40 MILLIGRAM
     Route: 058
     Dates: start: 20230307, end: 20230307
  4. HUMIRA [Suspect]
     Active Substance: ADALIMUMAB
     Dosage: FORM STRENGTH: 40 MILLIGRAM
     Route: 058
     Dates: start: 20230905, end: 20240305
  5. HUMIRA [Suspect]
     Active Substance: ADALIMUMAB
     Dosage: FORM STRENGTH: 40 MILLIGRAM
     Route: 058
     Dates: start: 20240322, end: 20240322
  6. Polyethylene Glycol Electrolytes [Concomitant]
     Indication: Bowel preparation
     Dosage: 294.36 MILLIGRAM,?FREQUENCY TEXT: ONCE
     Route: 048
     Dates: start: 20231207, end: 20231207
  7. Polyethylene Glycol Electrolytes [Concomitant]
     Indication: Bowel preparation
     Dosage: 139120 MILLIGRAM,?FREQUENCY TEXT: ONCE
     Route: 048
     Dates: start: 20231201, end: 20231201

REACTIONS (4)
  - Anal fistula [Recovered/Resolved]
  - Hepatic function abnormal [Recovered/Resolved]
  - Hyperuricaemia [Not Recovered/Not Resolved]
  - Malnutrition [Recovered/Resolved]

NARRATIVE: CASE EVENT DATE: 20230309
